FAERS Safety Report 6329988-9 (Version None)
Quarter: 2009Q3

REPORT INFORMATION
  Report Type: 
  Country: None (occurrence: None)
  Receive Date: 20090825
  Receipt Date: 20090810
  Transmission Date: 20100115
  Serious: Yes (Other)
  Sender: FDA-Public Use
  Company Number: IE-000720

PATIENT
  Sex: Male

DRUGS (3)
  1. FIRMAGON [Suspect]
     Indication: PROSTATE CANCER
     Dosage: SUBCUTANEOUS
     Route: 058
     Dates: start: 20090608, end: 20090706
  2. NU-SEALS ASPIRIN [Suspect]
  3. NEXIUM [Concomitant]

REACTIONS (6)
  - ARTHRALGIA [None]
  - DEPRESSED MOOD [None]
  - FATIGUE [None]
  - LETHARGY [None]
  - MYALGIA [None]
  - NAUSEA [None]
